FAERS Safety Report 11426935 (Version 1)
Quarter: 2015Q3

REPORT INFORMATION
  Report Type: Spontaneous
  Country: US (occurrence: US)
  Receive Date: 20150821
  Receipt Date: 20150821
  Transmission Date: 20151125
  Serious: No
  Sender: FDA-Public Use
  Company Number: US-ELI_LILLY_AND_COMPANY-US201307005765

PATIENT
  Sex: Female

DRUGS (4)
  1. CIALIS [Suspect]
     Active Substance: TADALAFIL
     Indication: IMPAIRED GASTRIC EMPTYING
     Dosage: 2.5 MG, QD
     Route: 065
     Dates: start: 20130712
  2. CIALIS [Suspect]
     Active Substance: TADALAFIL
     Dosage: 1.25 MG, QOD
     Route: 065
     Dates: start: 20130809
  3. CIALIS [Suspect]
     Active Substance: TADALAFIL
     Dosage: 1 DF, QOD
     Route: 065
  4. CIALIS [Suspect]
     Active Substance: TADALAFIL
     Dosage: 1 DF, QD
     Route: 065

REACTIONS (3)
  - Malaise [Recovered/Resolved]
  - Wrong technique in product usage process [Recovered/Resolved]
  - Off label use [Unknown]
